FAERS Safety Report 10665036 (Version 7)
Quarter: 2016Q1

REPORT INFORMATION
  Report Type: Report from Study
  Country: US (occurrence: US)
  Receive Date: 20141219
  Receipt Date: 20160315
  Transmission Date: 20160525
  Serious: Yes (Hospitalization)
  Sender: FDA-Public Use
  Company Number: US-ACTELION-A-US2014-109661

PATIENT
  Age: 57 Year
  Sex: Female

DRUGS (7)
  1. MACITENTAN [Suspect]
     Active Substance: MACITENTAN
     Indication: PULMONARY HYPERTENSION
     Dosage: 10 MG, QD
     Route: 048
     Dates: start: 20141006
  2. REVATIO [Concomitant]
     Active Substance: SILDENAFIL CITRATE
  3. TREPROSTINIL DIOLAMIN [Suspect]
     Active Substance: TREPROSTINIL DIOLAMINE
     Indication: PRODUCT USED FOR UNKNOWN INDICATION
     Dosage: UNK
     Route: 065
     Dates: end: 20160226
  4. LOVENOX [Concomitant]
     Active Substance: ENOXAPARIN SODIUM
  5. ELIQUIS [Concomitant]
     Active Substance: APIXABAN
     Dosage: 25 MG, BID
  6. SPIRONOLACTONE. [Concomitant]
     Active Substance: SPIRONOLACTONE
     Dosage: 25 MG, BID
  7. TORSEMIDE. [Concomitant]
     Active Substance: TORSEMIDE
     Dosage: 20 MG, QD

REACTIONS (11)
  - Dyspepsia [Unknown]
  - Dizziness [Unknown]
  - Transfusion [Unknown]
  - Decreased appetite [Unknown]
  - Condition aggravated [Unknown]
  - Pulmonary arterial hypertension [Unknown]
  - Diarrhoea [Unknown]
  - Thrombosis [Unknown]
  - Cardiac failure [Unknown]
  - Dyspnoea [Unknown]
  - Oedema [Unknown]

NARRATIVE: CASE EVENT DATE: 20141209
